FAERS Safety Report 9299507 (Version 3)
Quarter: 2013Q3

REPORT INFORMATION
  Report Type: Report from Study
  Country: BR (occurrence: BR)
  Receive Date: 20130521
  Receipt Date: 20130909
  Transmission Date: 20140515
  Serious: Yes (Other)
  Sender: FDA-Public Use
  Company Number: BR-ROCHE-1225142

PATIENT
  Sex: Female

DRUGS (6)
  1. XOLAIR [Suspect]
     Indication: ASTHMA
     Dosage: 1 AMPOULE
     Route: 065
  2. MONTELAR [Concomitant]
  3. SERETIDE [Concomitant]
  4. CITALOPRAM [Concomitant]
  5. AZITROMICINA [Concomitant]
  6. CARDIZEM [Concomitant]

REACTIONS (6)
  - Viral infection [Recovering/Resolving]
  - Anxiety [Recovering/Resolving]
  - Insomnia [Recovering/Resolving]
  - Gastrooesophageal reflux disease [Recovering/Resolving]
  - Drug ineffective [Unknown]
  - Lung disorder [Recovering/Resolving]
